FAERS Safety Report 15427711 (Version 1)
Quarter: 2018Q3

REPORT INFORMATION
  Report Type: Spontaneous
  Country: JP (occurrence: JP)
  Receive Date: 20180925
  Receipt Date: 20180925
  Transmission Date: 20181010
  Serious: Yes (Hospitalization)
  Sender: FDA-Public Use
  Company Number: JP-GLAXOSMITHKLINE-JP2018JPN160253

PATIENT
  Age: 8 Decade
  Sex: Male

DRUGS (3)
  1. REQUIP [Suspect]
     Active Substance: ROPINIROLE HYDROCHLORIDE
     Dosage: 2 MG, UNK
     Route: 048
  2. FP (JAPAN) [Concomitant]
     Dosage: UNK
  3. DOPACOL [Concomitant]
     Active Substance: CARBIDOPA\LEVODOPA
     Dosage: UNK

REACTIONS (1)
  - Surgery [Recovered/Resolved]
